FAERS Safety Report 6557756-1 (Version None)
Quarter: 2010Q1

REPORT INFORMATION
  Report Type: 
  Country: None (occurrence: None)
  Receive Date: 20100129
  Receipt Date: 20100120
  Transmission Date: 20100710
  Serious: Yes (Death, Other)
  Sender: FDA-Public Use
  Company Number: GB-PFIZER INC-2010007742

PATIENT
  Age: 24 Year
  Sex: Female

DRUGS (6)
  1. METHYLPREDNISOLONE AND METHYLPREDNISOLONE ACETATE AND METHYLPREDNISOLO [Suspect]
     Indication: IMMUNOSUPPRESSION
     Dosage: 1 G, UNK
     Route: 042
  2. PREDNISOLONE AND PREDNISOLONE STEAGLATE [Suspect]
     Indication: IMMUNOSUPPRESSION
  3. CYCLOSPORINE [Suspect]
     Indication: IMMUNOSUPPRESSION
     Dosage: 4 MG/KG, UNK
     Route: 048
  4. AMPHOTERICIN B [Suspect]
  5. AZATHIOPRINE [Suspect]
     Indication: IMMUNOSUPPRESSION
     Dosage: 6 UG/KG, UNK
     Route: 048
  6. ITRACONAZOLE [Suspect]
     Route: 048

REACTIONS (3)
  - EYE INFECTION FUNGAL [None]
  - FUNGAL ENDOCARDITIS [None]
  - SEPSIS [None]
